FAERS Safety Report 23854886 (Version 1)
Quarter: 2024Q2

REPORT INFORMATION
  Report Type: Spontaneous
  Country: US (occurrence: US)
  Receive Date: 20240514
  Receipt Date: 20240514
  Transmission Date: 20240716
  Serious: No
  Sender: FDA-Public Use
  Company Number: US-ANIPHARMA-2024-US-014717

PATIENT
  Age: 62 Year
  Sex: Female

DRUGS (21)
  1. CORTICOTROPIN [Suspect]
     Active Substance: CORTICOTROPIN
     Indication: Polymyositis
     Dosage: 1 ML TWO TIMES PER WEEK
     Route: 030
  2. VITAMIN D3 [Concomitant]
     Active Substance: CHOLECALCIFEROL
  3. MESALAMINE [Concomitant]
     Active Substance: MESALAMINE
  4. YUVAFEM [Concomitant]
     Active Substance: ESTRADIOL HEMIHYDRATE
  5. LEVOMEFOLIC ACID\METHYLCOBALAMIN\TURMERIC [Concomitant]
     Active Substance: LEVOMEFOLIC ACID\METHYLCOBALAMIN\TURMERIC
  6. VITAMIN A [Concomitant]
     Active Substance: VITAMIN A
  7. COENZYME Q10 [Concomitant]
     Active Substance: DIETARY SUPPLEMENT\UBIDECARENONE
  8. VITAMINS [Concomitant]
     Active Substance: VITAMINS
  9. OMEGA 3-6-9 COMPLEX [Concomitant]
  10. BENADRYL ALLERGY [Concomitant]
     Active Substance: DIPHENHYDRAMINE HYDROCHLORIDE
  11. STRESS B COMPLEX [Concomitant]
  12. PREDNISOLONE [Concomitant]
     Active Substance: PREDNISOLONE
  13. LOSARTAN POTASSIUM [Concomitant]
     Active Substance: LOSARTAN POTASSIUM
  14. BIOTIN [Concomitant]
     Active Substance: BIOTIN
  15. TYLENOL EXTRA STREN [Concomitant]
  16. METHOTREXATE SODIUM [Concomitant]
     Active Substance: METHOTREXATE SODIUM
  17. FAMOTIDINE [Concomitant]
     Active Substance: FAMOTIDINE
  18. GABAPENTIN [Concomitant]
     Active Substance: GABAPENTIN
  19. ZYRTEC [Concomitant]
     Active Substance: CETIRIZINE HYDROCHLORIDE
  20. CVS VITAMIN B12 [Concomitant]
  21. RITUXAN [Concomitant]
     Active Substance: RITUXIMAB

REACTIONS (3)
  - Insomnia [Unknown]
  - Weight decreased [Unknown]
  - Blood potassium decreased [Unknown]

NARRATIVE: CASE EVENT DATE: 20230501
